FAERS Safety Report 13615300 (Version 2)
Quarter: 2017Q2

REPORT INFORMATION
  Report Type: Spontaneous
  Country: US (occurrence: US)
  Receive Date: 20170606
  Receipt Date: 20170620
  Transmission Date: 20170830
  Serious: No
  Sender: FDA-Public Use
  Company Number: US-GLAXOSMITHKLINE-US2017GSK083560

PATIENT
  Sex: Male

DRUGS (3)
  1. ANORO ELLIPTA [Concomitant]
     Active Substance: UMECLIDINIUM BROMIDE\VILANTEROL TRIFENATATE
     Dosage: UNK
  2. ZITHROMAX [Concomitant]
     Active Substance: AZITHROMYCIN DIHYDRATE
     Indication: RESPIRATORY TRACT INFECTION
     Dosage: UNK
  3. ARNUITY ELLIPTA [Suspect]
     Active Substance: FLUTICASONE FUROATE
     Indication: EMPHYSEMA
     Dosage: UNK UNK, 1D
     Dates: start: 20170519, end: 20170527

REACTIONS (4)
  - Cough [Unknown]
  - Off label use [Unknown]
  - Product use in unapproved indication [Unknown]
  - Throat irritation [Unknown]
